FAERS Safety Report 18007023 (Version 2)
Quarter: 2020Q3

REPORT INFORMATION
  Report Type: Report from Study
  Country: BR (occurrence: BR)
  Receive Date: 20200710
  Receipt Date: 20200917
  Transmission Date: 20201103
  Serious: Yes (Disabling)
  Sender: FDA-Public Use
  Company Number: BR-BIOGEN-2020BI00894582

PATIENT
  Sex: Female

DRUGS (16)
  1. AVONEX PEN [Suspect]
     Active Substance: INTERFERON BETA-1A
  2. CYMBALTA [Concomitant]
     Active Substance: DULOXETINE HYDROCHLORIDE
     Route: 065
  3. BACLOFEN. [Concomitant]
     Active Substance: BACLOFEN
     Route: 065
  4. BACLOFEN. [Concomitant]
     Active Substance: BACLOFEN
     Route: 065
  5. AVONEX PEN [Suspect]
     Active Substance: INTERFERON BETA-1A
     Indication: MULTIPLE SCLEROSIS
     Route: 030
     Dates: start: 201211
  6. CYMBALTA [Concomitant]
     Active Substance: DULOXETINE HYDROCHLORIDE
     Indication: PRODUCT USED FOR UNKNOWN INDICATION
     Route: 065
  7. FRONTAL [Concomitant]
     Active Substance: ALPRAZOLAM
     Indication: PRODUCT USED FOR UNKNOWN INDICATION
     Route: 065
  8. AVONEX PEN [Suspect]
     Active Substance: INTERFERON BETA-1A
  9. BACLOFEN. [Concomitant]
     Active Substance: BACLOFEN
     Indication: PRODUCT USED FOR UNKNOWN INDICATION
     Route: 065
  10. AVONEX PEN [Suspect]
     Active Substance: INTERFERON BETA-1A
  11. LYRICA [Concomitant]
     Active Substance: PREGABALIN
     Route: 065
  12. LYRICA [Concomitant]
     Active Substance: PREGABALIN
     Route: 065
  13. LYRICA [Concomitant]
     Active Substance: PREGABALIN
     Indication: PRODUCT USED FOR UNKNOWN INDICATION
     Route: 065
  14. FRONTAL [Concomitant]
     Active Substance: ALPRAZOLAM
     Route: 065
  15. CYMBALTA [Concomitant]
     Active Substance: DULOXETINE HYDROCHLORIDE
     Route: 065
  16. FRONTAL [Concomitant]
     Active Substance: ALPRAZOLAM
     Route: 065

REACTIONS (8)
  - Pyrexia [Recovered/Resolved]
  - Multiple sclerosis relapse [Recovered/Resolved with Sequelae]
  - Fall [Recovered/Resolved]
  - Multiple sclerosis [Unknown]
  - Pain [Recovered/Resolved]
  - Gait disturbance [Not Recovered/Not Resolved]
  - Malaise [Recovered/Resolved]
  - Headache [Recovered/Resolved]
